FAERS Safety Report 7099429-5 (Version None)
Quarter: 2010Q4

REPORT INFORMATION
  Report Type: 
  Country: None (occurrence: None)
  Receive Date: 20101112
  Receipt Date: 20080916
  Transmission Date: 20110411
  Serious: No
  Sender: FDA-Public Use
  Company Number: US-KINGPHARMUSA00001-K200801087

PATIENT
  Sex: Female

DRUGS (1)
  1. AVINZA [Suspect]

REACTIONS (1)
  - SOMNOLENCE [None]
